FAERS Safety Report 14976523 (Version 3)
Quarter: 2023Q1

REPORT INFORMATION
  Report Type: Report from Study
  Country: IN (occurrence: IN)
  Receive Date: 20180605
  Receipt Date: 20230216
  Transmission Date: 20230418
  Serious: Yes (Other)
  Sender: FDA-Public Use
  Company Number: PHHY2018IN011267

PATIENT
  Sex: Female

DRUGS (2)
  1. GLIVEC [Suspect]
     Active Substance: IMATINIB MESYLATE
     Indication: Chronic myeloid leukaemia
     Dosage: 400 MG
     Route: 065
  2. GLIVEC [Suspect]
     Active Substance: IMATINIB MESYLATE
     Dosage: 300 MG (3 X 100MG)
     Route: 065

REACTIONS (5)
  - Loss of consciousness [Unknown]
  - Skin disorder [Unknown]
  - Drug intolerance [Unknown]
  - Fluid retention [Unknown]
  - Diarrhoea [Unknown]
